FAERS Safety Report 10882896 (Version 4)
Quarter: 2015Q2

REPORT INFORMATION
  Report Type: Spontaneous
  Country: JP (occurrence: JP)
  Receive Date: 20150303
  Receipt Date: 20150415
  Transmission Date: 20150821
  Serious: Yes (Life-Threatening, Hospitalization, Other)
  Sender: FDA-Public Use
  Company Number: JP-PFIZER INC-2015069686

PATIENT
  Age: 58 Year
  Sex: Male

DRUGS (3)
  1. TORISEL [Suspect]
     Active Substance: TEMSIROLIMUS
     Indication: RENAL CELL CARCINOMA
     Dosage: 25 MG, 1X/DAY
     Route: 042
     Dates: start: 20150108, end: 20150108
  2. TORISEL [Suspect]
     Active Substance: TEMSIROLIMUS
     Dosage: 20 MG, WEEKLY
     Route: 042
     Dates: start: 20150122, end: 20150205
  3. BAYASPIRIN [Suspect]
     Active Substance: ASPIRIN
     Dosage: 100 MG, 1X/DAY
     Route: 048
     Dates: end: 20150208

REACTIONS (5)
  - Large intestinal ulcer [Unknown]
  - Melaena [Recovering/Resolving]
  - Enterocolitis [Not Recovered/Not Resolved]
  - Hypertension [Unknown]
  - Hyperkalaemia [Recovered/Resolved]

NARRATIVE: CASE EVENT DATE: 2015
